FAERS Safety Report 10329890 (Version 2)
Quarter: 2014Q3

REPORT INFORMATION
  Report Type: Spontaneous
  Country: US (occurrence: US)
  Receive Date: 20140721
  Receipt Date: 20140729
  Transmission Date: 20150326
  Serious: Yes (Hospitalization)
  Sender: FDA-Public Use
  Company Number: US-GLAXOSMITHKLINE-A1077010A

PATIENT
  Sex: Male

DRUGS (1)
  1. VOTRIENT [Suspect]
     Active Substance: PAZOPANIB HYDROCHLORIDE
     Indication: PRODUCT USED FOR UNKNOWN INDICATION
     Dosage: 200MG UNKNOWN
     Route: 065

REACTIONS (7)
  - Contusion [Unknown]
  - Investigation [Unknown]
  - Rash [Unknown]
  - Oedema peripheral [Unknown]
  - Vomiting [Unknown]
  - Gastrointestinal disorder [Unknown]
  - Peripheral swelling [Unknown]
